FAERS Safety Report 7809898-8 (Version None)
Quarter: 2011Q4

REPORT INFORMATION
  Report Type: 
  Country: None (occurrence: None)
  Receive Date: 20111012
  Receipt Date: 20111004
  Transmission Date: 20120403
  Serious: Yes (Hospitalization, Other)
  Sender: FDA-Public Use
  Company Number: US-PURDUE-USA-2011-0075718

PATIENT
  Sex: Male

DRUGS (3)
  1. OXYCONTIN [Suspect]
     Dosage: 320 MG, DAILY
     Dates: start: 20110526
  2. OXYCONTIN [Suspect]
     Dosage: 80 MG, TID
     Route: 048
     Dates: start: 20110601
  3. OXYCONTIN [Suspect]
     Indication: PAIN
     Dosage: 120 MG, HS

REACTIONS (4)
  - BLADDER CANCER STAGE IV [None]
  - METASTASES TO BONE [None]
  - CONFUSIONAL STATE [None]
  - DYSPNOEA [None]
